FAERS Safety Report 17435757 (Version 2)
Quarter: 2020Q1

REPORT INFORMATION
  Report Type: Spontaneous
  Country: US (occurrence: US)
  Receive Date: 20200219
  Receipt Date: 20200221
  Transmission Date: 20200409
  Serious: Yes (Other)
  Sender: FDA-Public Use
  Company Number: US-SA-2020SA041954

PATIENT
  Sex: Female

DRUGS (2)
  1. DUPIXENT [Suspect]
     Active Substance: DUPILUMAB
  2. XOLAIR [Concomitant]
     Active Substance: OMALIZUMAB

REACTIONS (3)
  - Transient ischaemic attack [Unknown]
  - Eosinophil count increased [Unknown]
  - Therapeutic response decreased [Unknown]
